FAERS Safety Report 12067760 (Version 1)
Quarter: 2016Q1

REPORT INFORMATION
  Report Type: Spontaneous
  Country: US (occurrence: US)
  Receive Date: 20160211
  Receipt Date: 20160211
  Transmission Date: 20160526
  Serious: No
  Sender: FDA-Public Use
  Company Number: US-SMITH AND NEPHEW, INC-2015SMT00024

PATIENT
  Sex: Female
  Weight: 99.77 kg

DRUGS (11)
  1. REGRANEX [Suspect]
     Active Substance: BECAPLERMIN
     Indication: WOUND
     Dosage: 1 DOSAGE UNITS, 1X/DAY
     Route: 061
  2. GABAPENTIN. [Concomitant]
     Active Substance: GABAPENTIN
     Dosage: 400 MG, 1X/DAY
  3. NAPROXEN. [Concomitant]
     Active Substance: NAPROXEN
     Dosage: 500 MG, 2X/DAY
  4. PRISMA COLLAGEN DRESSING [Concomitant]
     Dosage: UNK, 1X/DAY
  5. GABAPENTIN. [Concomitant]
     Active Substance: GABAPENTIN
     Dosage: 800 MG, 1X/DAY
  6. TRAMADOL. [Concomitant]
     Active Substance: TRAMADOL
     Dosage: 50 MG, 2X/DAY
  7. LISINOPRIL. [Concomitant]
     Active Substance: LISINOPRIL
     Dosage: 5 MG, 1X/DAY
  8. CALCIUM 400 IU WITH VITAMIN D3 [Concomitant]
     Dosage: 600 MG, 1X/DAY
  9. METFORMIN [Concomitant]
     Active Substance: METFORMIN HYDROCHLORIDE
     Dosage: 500 MG, 1X/DAY
  10. METFORMIN [Concomitant]
     Active Substance: METFORMIN HYDROCHLORIDE
     Dosage: 1000 MG, 1X/DAY
  11. EXEMESTANE. [Concomitant]
     Active Substance: EXEMESTANE
     Dosage: 25 MG, 1X/DAY

REACTIONS (3)
  - Application site pain [Recovered/Resolved]
  - Wrong technique in product usage process [Recovered/Resolved]
  - Application site erythema [Recovered/Resolved]

NARRATIVE: CASE EVENT DATE: 2015
